FAERS Safety Report 15866205 (Version 1)
Quarter: 2019Q1

REPORT INFORMATION
  Report Type: Spontaneous
  Country: US (occurrence: US)
  Receive Date: 20190125
  Receipt Date: 20190125
  Transmission Date: 20190417
  Serious: No
  Sender: FDA-Public Use
  Company Number: US-PFIZER INC-2019029774

PATIENT
  Age: 16 Year
  Sex: Male

DRUGS (1)
  1. GENOTROPIN MQ [Suspect]
     Active Substance: SOMATROPIN
     Indication: DIGEORGE^S SYNDROME
     Dosage: 1.6 MG, DAILY
     Dates: start: 20070401

REACTIONS (10)
  - Product use in unapproved indication [Unknown]
  - Blood luteinising hormone increased [Unknown]
  - Blood testosterone decreased [Unknown]
  - Blood phosphorus increased [Unknown]
  - Product dose omission [Unknown]
  - Thyroxine free decreased [Unknown]
  - Insulin-like growth factor decreased [Unknown]
  - Vitamin D decreased [Unknown]
  - Blood testosterone free decreased [Unknown]
  - Feeling cold [Unknown]

NARRATIVE: CASE EVENT DATE: 201708
